FAERS Safety Report 10677178 (Version 3)
Quarter: 2015Q1

REPORT INFORMATION
  Report Type: Spontaneous
  Country: IT (occurrence: IT)
  Receive Date: 20141226
  Receipt Date: 20150223
  Transmission Date: 20150720
  Serious: Yes (Hospitalization)
  Sender: FDA-Public Use
  Company Number: IT-SA-2014SA170939

PATIENT
  Age: 15 Year
  Sex: Male

DRUGS (1)
  1. CLEXANE [Suspect]
     Active Substance: ENOXAPARIN SODIUM
     Indication: LIGAMENT DISORDER
     Dosage: DOSE:4000 IU(IN THOUSANDS)?STRENGTH:4000 IU/0.4 ML SOLUTION PRE-FILLED SYRINGES
     Route: 058
     Dates: start: 20141126, end: 20141128

REACTIONS (1)
  - Eczema [Unknown]

NARRATIVE: CASE EVENT DATE: 20141128
